FAERS Safety Report 6998138-8 (Version None)
Quarter: 2010Q3

REPORT INFORMATION
  Report Type: 
  Country: None (occurrence: None)
  Receive Date: 20100920
  Receipt Date: 20090820
  Transmission Date: 20110219
  Serious: Yes (Other)
  Sender: FDA-Public Use
  Company Number: US-ASTRAZENECA-2009UW13436

PATIENT
  Age: 231 Month
  Sex: Female
  Weight: 44.5 kg

DRUGS (12)
  1. SEROQUEL [Suspect]
     Indication: INSOMNIA
     Dosage: 25 MG TO 400 MG
     Route: 048
     Dates: start: 20040101, end: 20070101
  2. SEROQUEL [Suspect]
     Indication: ATTENTION DEFICIT/HYPERACTIVITY DISORDER
     Dosage: 25 MG TO 400 MG
     Route: 048
     Dates: start: 20040101, end: 20070101
  3. ZYPREXA [Concomitant]
     Indication: INSOMNIA
     Dates: start: 20020101, end: 20040101
  4. ZYPREXA [Concomitant]
     Indication: ATTENTION DEFICIT/HYPERACTIVITY DISORDER
     Dates: start: 20020101, end: 20040101
  5. ABILIFY [Concomitant]
     Dates: start: 20030101
  6. THORAZINE [Concomitant]
     Dates: start: 20040101, end: 20050101
  7. DEPAKOTE [Concomitant]
     Dates: start: 20020101, end: 20030101
  8. ZOLOFT [Concomitant]
     Dates: start: 20060101, end: 20070101
  9. PAXIL [Concomitant]
     Dates: start: 20020101
  10. TOPAMAX [Concomitant]
     Dates: start: 20020101, end: 20030101
  11. TEGRETOL [Concomitant]
     Dates: start: 20030101
  12. KLONOPIN [Concomitant]
     Dosage: 6 M GTO 12 MG
     Dates: start: 20060101, end: 20090101

REACTIONS (3)
  - BLOOD CHOLESTEROL INCREASED [None]
  - DIABETIC COMA [None]
  - DIABETIC KETOACIDOSIS [None]
